FAERS Safety Report 10448994 (Version 1)
Quarter: 2014Q3

REPORT INFORMATION
  Report Type: Spontaneous
  Country: FR (occurrence: FR)
  Receive Date: 20140912
  Receipt Date: 20140912
  Transmission Date: 20150326
  Serious: Yes (Hospitalization)
  Sender: FDA-Public Use
  Company Number: FR-ASTRAZENECA-2014SE67355

PATIENT
  Age: 908 Month
  Sex: Female

DRUGS (3)
  1. MOPRAL [Suspect]
     Active Substance: OMEPRAZOLE SODIUM
     Route: 048
  2. LEVOTHYROX [Concomitant]
     Active Substance: LEVOTHYROXINE
  3. MOVICOL [Suspect]
     Active Substance: POLYETHYLENE GLYCOL 3350\POTASSIUM CHLORIDE\SODIUM BICARBONATE\SODIUM CHLORIDE
     Route: 048

REACTIONS (6)
  - Vertigo [Unknown]
  - Dizziness [Unknown]
  - General physical health deterioration [Unknown]
  - Vomiting [Unknown]
  - Bradyphrenia [Unknown]
  - Hyponatraemia [Recovered/Resolved]

NARRATIVE: CASE EVENT DATE: 201408
